FAERS Safety Report 5506449-8 (Version None)
Quarter: 2007Q4

REPORT INFORMATION
  Report Type: 
  Country: None (occurrence: None)
  Receive Date: 20071101
  Receipt Date: 20071101
  Transmission Date: 20080405
  Serious: Yes (Hospitalization, Other)
  Sender: FDA-Public Use
  Company Number: None

PATIENT
  Sex: Female

DRUGS (7)
  1. REVLIMID [Suspect]
     Indication: MYELODYSPLASTIC SYNDROME
     Dosage: 5MG EVERY OTHER DAY PO
     Route: 048
     Dates: start: 20070629, end: 20071011
  2. PROCRIT [Concomitant]
  3. VICODIN [Concomitant]
  4. TEMAZEPAM [Concomitant]
  5. DIAZEPAM [Concomitant]
  6. MORPHINE [Concomitant]
  7. FERROUS SULFATE TAB [Concomitant]

REACTIONS (9)
  - ABDOMINAL DISCOMFORT [None]
  - ACUTE MYELOID LEUKAEMIA [None]
  - ANAEMIA [None]
  - ANOREXIA [None]
  - BLISTER [None]
  - DIARRHOEA [None]
  - HYPOTENSION [None]
  - RASH [None]
  - THROMBOCYTOPENIA [None]
